FAERS Safety Report 7705649-6 (Version None)
Quarter: 2011Q3

REPORT INFORMATION
  Report Type: 
  Country: None (occurrence: None)
  Receive Date: 20110824
  Receipt Date: 20110817
  Transmission Date: 20111222
  Serious: Yes (Other)
  Sender: FDA-Public Use
  Company Number: US-NOVOPROD-331260

PATIENT
  Sex: Female
  Weight: 108.21 kg

DRUGS (6)
  1. BENICAR HCT [Concomitant]
     Indication: PRODUCT USED FOR UNKNOWN INDICATION
     Dosage: 20/12.5 MG
  2. SINGULAIR [Concomitant]
     Indication: PRODUCT USED FOR UNKNOWN INDICATION
     Dosage: 10 MG
  3. VAGIFEM LD [Concomitant]
     Indication: PRODUCT USED FOR UNKNOWN INDICATION
     Dosage: UNK
     Route: 067
  4. VICTOZA [Suspect]
     Indication: GLUCOSE TOLERANCE TEST ABNORMAL
     Dosage: 1.2 MG, QD
     Route: 058
     Dates: start: 20101118, end: 20110601
  5. VICTOZA [Suspect]
     Indication: HYPERGLYCAEMIA
  6. AMBIEN [Concomitant]
     Indication: PRODUCT USED FOR UNKNOWN INDICATION
     Dosage: 10 MG

REACTIONS (1)
  - PANCREATITIS ACUTE [None]
